FAERS Safety Report 6671440-5 (Version None)
Quarter: 2010Q2

REPORT INFORMATION
  Report Type: 
  Country: None (occurrence: None)
  Receive Date: 20100407
  Receipt Date: 20100327
  Transmission Date: 20101027
  Serious: Yes (Other)
  Sender: FDA-Public Use
  Company Number: US-JNJCH-2010007674

PATIENT
  Age: 45 Year
  Sex: Female

DRUGS (1)
  1. BENADRYL [Suspect]
     Indication: URTICARIA
     Dosage: TEXT:ONE PILL 2X
     Route: 048
     Dates: start: 20100326, end: 20100327

REACTIONS (5)
  - DRUG INEFFECTIVE [None]
  - ERYTHEMA [None]
  - HYPERSENSITIVITY [None]
  - PRODUCT QUALITY ISSUE [None]
  - TRANSMISSION OF AN INFECTIOUS AGENT VIA A MEDICINAL PRODUCT [None]
